FAERS Safety Report 8175057-5 (Version None)
Quarter: 2012Q1

REPORT INFORMATION
  Report Type: 
  Country: None (occurrence: None)
  Receive Date: 20120229
  Receipt Date: 20120222
  Transmission Date: 20120608
  Serious: Yes (Other)
  Sender: FDA-Public Use
  Company Number: PHFR2012IE000917

PATIENT
  Sex: Male

DRUGS (6)
  1. CLOZARIL [Suspect]
     Indication: SCHIZOPHRENIA
     Route: 048
     Dates: start: 19980203
  2. POLYETHYLENE GLYCOL [Concomitant]
     Indication: CONSTIPATION
     Dosage: 13 G, DAILY
     Route: 048
     Dates: start: 20040101
  3. SODIUM ALGINATE [Concomitant]
     Indication: NAUSEA
     Dosage: 1 TSP, BID
     Route: 048
     Dates: start: 20040101
  4. CLOZARIL [Suspect]
     Route: 048
     Dates: start: 20010701
  5. CLOZARIL [Suspect]
     Dosage: 325 MG, DAILY
     Route: 048
     Dates: start: 20040101
  6. OMEPRAZOLE [Concomitant]
     Indication: NAUSEA
     Dosage: 10 MG, DAILY
     Route: 048
     Dates: start: 20040101

REACTIONS (7)
  - POLYP [None]
  - UPPER RESPIRATORY TRACT INFECTION [None]
  - NASOPHARYNGITIS [None]
  - WHITE BLOOD CELL COUNT DECREASED [None]
  - BODY TEMPERATURE INCREASED [None]
  - PLATELET COUNT DECREASED [None]
  - INFLUENZA LIKE ILLNESS [None]
